FAERS Safety Report 7868296-1 (Version None)
Quarter: 2011Q4

REPORT INFORMATION
  Report Type: 
  Country: None (occurrence: None)
  Receive Date: 20111028
  Receipt Date: 20101220
  Transmission Date: 20120403
  Serious: No
  Sender: FDA-Public Use
  Company Number: US-AMGEN-USASP2010007937

PATIENT
  Age: 69 Year
  Sex: Female

DRUGS (2)
  1. ENBREL [Suspect]
     Indication: RHEUMATOID ARTHRITIS
     Dosage: 50 MG, QWK
     Dates: start: 20101018
  2. ENBREL [Suspect]
     Dates: start: 20101105

REACTIONS (8)
  - INJECTION SITE PAIN [None]
  - INJECTION SITE ERYTHEMA [None]
  - RESPIRATORY TRACT CONGESTION [None]
  - COUGH [None]
  - INJECTION SITE PAPULE [None]
  - INJECTION SITE PRURITUS [None]
  - INJECTION SITE WARMTH [None]
  - OROPHARYNGEAL PAIN [None]
